FAERS Safety Report 13360631 (Version 2)
Quarter: 2017Q2

REPORT INFORMATION
  Report Type: Report from Study
  Country: US (occurrence: US)
  Receive Date: 20170322
  Receipt Date: 20170421
  Transmission Date: 20170830
  Serious: Yes (Hospitalization, Other)
  Sender: FDA-Public Use
  Company Number: US-ACTELION-A-US2015-114599

PATIENT
  Age: 65 Year
  Sex: Male

DRUGS (35)
  1. AUGMENTIN [Concomitant]
     Active Substance: AMOXICILLIN\CLAVULANATE POTASSIUM
     Dosage: UNK
     Dates: start: 20161027
  2. INSULINE LISPRO [Concomitant]
     Dosage: UNK
  3. LOVENOX [Concomitant]
     Active Substance: ENOXAPARIN SODIUM
  4. PANTOPRAZOLE SODIUM. [Concomitant]
     Active Substance: PANTOPRAZOLE SODIUM
  5. VANCOMYCIN [Concomitant]
     Active Substance: VANCOMYCIN
  6. ALBUTEROL W/IPRATROPIUM [Concomitant]
     Active Substance: ALBUTEROL\IPRATROPIUM
     Dosage: UNK
     Dates: start: 20120112
  7. LEVOTHYROXINE. [Concomitant]
     Active Substance: LEVOTHYROXINE
     Dosage: UNK
     Dates: start: 20120412
  8. AUGMENTIN [Concomitant]
     Active Substance: AMOXICILLIN\CLAVULANATE POTASSIUM
     Dosage: UNK
     Dates: start: 20170328
  9. ATROVENT [Concomitant]
     Active Substance: IPRATROPIUM BROMIDE
     Dosage: UNK
  10. PREDNISONE. [Concomitant]
     Active Substance: PREDNISONE
  11. METOPROLOL TARTRATE. [Concomitant]
     Active Substance: METOPROLOL TARTRATE
  12. BUDESONIDE. [Concomitant]
     Active Substance: BUDESONIDE
     Dosage: UNK
     Dates: start: 20150922
  13. DALIRESP [Concomitant]
     Active Substance: ROFLUMILAST
     Dosage: UNK
     Dates: start: 20140922
  14. PHENERGAN [Concomitant]
     Active Substance: PROMETHAZINE HYDROCHLORIDE
  15. ZOSYN [Concomitant]
     Active Substance: PIPERACILLIN SODIUM\TAZOBACTAM SODIUM
  16. METOPROLOL SUCCINATE. [Concomitant]
     Active Substance: METOPROLOL SUCCINATE
  17. OPSUMIT [Suspect]
     Active Substance: MACITENTAN
     Indication: CHRONIC OBSTRUCTIVE PULMONARY DISEASE
  18. METOPROLOL. [Concomitant]
     Active Substance: METOPROLOL
     Dosage: UNK
     Dates: start: 20141218
  19. DILTIAZEM. [Concomitant]
     Active Substance: DILTIAZEM
     Dosage: UNK
     Dates: start: 20160331
  20. DUONEB [Concomitant]
     Active Substance: ALBUTEROL SULFATE\IPRATROPIUM BROMIDE
     Dosage: UNK
  21. INSULINE GLARGINE [Concomitant]
     Active Substance: INSULIN GLARGINE
     Dosage: UNK
  22. METFORMIN [Concomitant]
     Active Substance: METFORMIN HYDROCHLORIDE
  23. TEMAZEPAM. [Concomitant]
     Active Substance: TEMAZEPAM
  24. ATORVASTATIN [Concomitant]
     Active Substance: ATORVASTATIN
     Dosage: UNK
     Dates: start: 20120328
  25. PERCOCET [Concomitant]
     Active Substance: ACETAMINOPHEN\OXYCODONE HYDROCHLORIDE
  26. SOLU-MEDROL [Concomitant]
     Active Substance: METHYLPREDNISOLONE SODIUM SUCCINATE
  27. ZOFRAN [Concomitant]
     Active Substance: ONDANSETRON HYDROCHLORIDE
  28. OPSUMIT [Suspect]
     Active Substance: MACITENTAN
     Indication: PULMONARY HYPERTENSION
     Dosage: UNK
     Route: 048
     Dates: start: 20141011
  29. CYCLOBENZAPRINE. [Concomitant]
     Active Substance: CYCLOBENZAPRINE
     Dosage: UNK
     Dates: start: 20150922
  30. MORPHINE SULFATE. [Concomitant]
     Active Substance: MORPHINE SULFATE
  31. POTASSIUM CHLORIDE. [Concomitant]
     Active Substance: POTASSIUM CHLORIDE
  32. DIPHENHYDRAMINE HCL [Concomitant]
     Active Substance: DIPHENHYDRAMINE HYDROCHLORIDE
     Dosage: UNK
  33. GUAIFENESINE [Concomitant]
     Dosage: UNK
  34. LEVOTHYROXINE SODIUM. [Concomitant]
     Active Substance: LEVOTHYROXINE SODIUM
     Dosage: UNK
  35. MAGNESIUM OXIDE. [Concomitant]
     Active Substance: MAGNESIUM OXIDE

REACTIONS (24)
  - Disease progression [Not Recovered/Not Resolved]
  - Small cell lung cancer metastatic [Not Recovered/Not Resolved]
  - Acute respiratory failure [Recovered/Resolved]
  - Chronic obstructive pulmonary disease [Recovered/Resolved]
  - Dyspnoea [Recovered/Resolved]
  - Packed red blood cell transfusion [Recovering/Resolving]
  - Pulmonary congestion [Recovered/Resolved]
  - Productive cough [Recovered/Resolved]
  - Pulmonary mass [Recovered/Resolved with Sequelae]
  - Pulmonary mass [Not Recovered/Not Resolved]
  - Lung adenocarcinoma recurrent [Not Recovered/Not Resolved]
  - Renal cell carcinoma [Not Recovered/Not Resolved]
  - Pyrexia [Recovered/Resolved]
  - Cough [Recovered/Resolved]
  - Platelet transfusion [Unknown]
  - Metastases to kidney [Unknown]
  - Bronchial secretion retention [Recovered/Resolved]
  - Transfusion [Unknown]
  - Chest pain [Recovered/Resolved]
  - Asthenia [Recovered/Resolved]
  - Candida infection [Not Recovered/Not Resolved]
  - Bronchitis [Recovered/Resolved]
  - Anaemia [Recovering/Resolving]
  - Pneumonia pseudomonal [Recovered/Resolved]

NARRATIVE: CASE EVENT DATE: 20150120
